FAERS Safety Report 18098292 (Version 7)
Quarter: 2020Q4

REPORT INFORMATION
  Report Type: Spontaneous
  Country: AU (occurrence: AU)
  Receive Date: 20200731
  Receipt Date: 20201009
  Transmission Date: 20210113
  Serious: Yes (Hospitalization, Other)
  Sender: FDA-Public Use
  Company Number: AU-PFIZER INC-2020284105

PATIENT
  Age: 32 Year
  Sex: Male
  Weight: 130 kg

DRUGS (31)
  1. CLOPINE [Suspect]
     Active Substance: CLOZAPINE
     Dosage: 50 MG, 1X/DAY
     Route: 048
     Dates: start: 2019
  2. CLOPINE [Suspect]
     Active Substance: CLOZAPINE
     Dosage: 25 MG, 1X/DAY
     Route: 048
     Dates: start: 2020
  3. DIABEX [Concomitant]
     Active Substance: METFORMIN HYDROCHLORIDE
     Dosage: 500 MG, 2X/DAY
     Route: 048
  4. LACTULOSE. [Concomitant]
     Active Substance: LACTULOSE
     Dosage: 20 ML, 2X/DAY
     Route: 048
  5. RAMIPRIL. [Concomitant]
     Active Substance: RAMIPRIL
     Dosage: 1 DF, AT NIGHT
  6. CLOPINE [Suspect]
     Active Substance: CLOZAPINE
     Dosage: 375 MG
  7. LIPITOR [Suspect]
     Active Substance: ATORVASTATIN CALCIUM
     Indication: HYPERCHOLESTEROLAEMIA
     Dosage: 20 MG, 1X/DAY
     Route: 048
  8. DIABEX [Concomitant]
     Active Substance: METFORMIN HYDROCHLORIDE
     Indication: INSULIN RESISTANCE
     Dosage: 500 MG, 1X/DAY
     Route: 048
  9. LITHIUM CARBONATE. [Concomitant]
     Active Substance: LITHIUM CARBONATE
     Dosage: 1 TAB IN THE MORNING, 2 TAB(S) IN THE EVENING WITH FOOD
     Route: 048
  10. NEXIUM [Concomitant]
     Active Substance: ESOMEPRAZOLE MAGNESIUM
     Dosage: 20 MG, 1X/DAY
     Route: 048
  11. BENZOYL PEROXIDE. [Concomitant]
     Active Substance: BENZOYL PEROXIDE
     Dosage: UNK
  12. DIAZEPAM. [Concomitant]
     Active Substance: DIAZEPAM
     Dosage: UNK
     Route: 048
  13. METFORMIN [Concomitant]
     Active Substance: METFORMIN HYDROCHLORIDE
     Dosage: 1 DF, TWICE A DAY WITH FOOD
  14. CLOPINE [Suspect]
     Active Substance: CLOZAPINE
     Dosage: 200 MG, 1X/DAY
     Route: 048
     Dates: start: 2019
  15. CLOPINE [Suspect]
     Active Substance: CLOZAPINE
     Dosage: 300 MG
  16. PANADOL [Concomitant]
     Active Substance: ACETAMINOPHEN
     Dosage: UNK
     Route: 048
  17. CLOZAPINE. [Suspect]
     Active Substance: CLOZAPINE
     Dosage: UNK
     Dates: start: 20150417
  18. CLOPINE [Suspect]
     Active Substance: CLOZAPINE
     Dosage: 350 MG, 1X/DAY
  19. COLOXYL WITH SENNA [Concomitant]
     Active Substance: DOCUSATE SODIUM\SENNOSIDES A AND B
     Dosage: 2 DF, 2X/DAY
     Route: 048
  20. CLOTRIMAZOLE. [Concomitant]
     Active Substance: CLOTRIMAZOLE
     Dosage: UNK
  21. EPILIM [Concomitant]
     Active Substance: VALPROATE SODIUM
     Dosage: 3 DF, TWICE A DAY WITH FOOD
     Route: 048
  22. FLUCLOXACILLIN [Concomitant]
     Active Substance: FLUCLOXACILLIN
     Indication: FURUNCLE
     Dosage: UNK
     Route: 048
  23. BISOPROLOL [Concomitant]
     Active Substance: BISOPROLOL
     Dosage: 2.5 MG, DAILY
     Route: 048
  24. CLOPINE [Suspect]
     Active Substance: CLOZAPINE
     Dosage: 100 MG, 1X/DAY
     Route: 048
     Dates: start: 2018
  25. LITHIUM CARBONATE. [Concomitant]
     Active Substance: LITHIUM CARBONATE
     Dosage: 900 MG, 1X/DAY
  26. COLECALCIFEROL [Concomitant]
     Active Substance: CHOLECALCIFEROL
     Dosage: UNK, DAILY
     Route: 048
  27. HYDROZOLE [Concomitant]
     Active Substance: CLOTRIMAZOLE\HYDROCORTISONE
     Dosage: UNK
  28. SODIUM VALPROATE [Concomitant]
     Active Substance: VALPROATE SODIUM
     Dosage: 1500 MG, 2X/DAY
     Route: 048
  29. MOVICOL [Concomitant]
     Active Substance: POLYETHYLENE GLYCOL 3350\POTASSIUM CHLORIDE\SODIUM BICARBONATE\SODIUM CHLORIDE
     Dosage: 1 DF, 2X/DAY
     Route: 048
  30. CLOPINE [Suspect]
     Active Substance: CLOZAPINE
     Dosage: UNK
     Dates: start: 20170410
  31. DOXYCYCLINE. [Concomitant]
     Active Substance: DOXYCYCLINE
     Dosage: 1 DF, ONCE A DAY WITH FOOD
     Route: 048

REACTIONS (28)
  - Systolic dysfunction [Unknown]
  - Weight increased [Unknown]
  - Acne [Unknown]
  - Bundle branch block right [Unknown]
  - Obesity [Unknown]
  - Spinal osteoarthritis [Unknown]
  - Epigastric discomfort [Unknown]
  - Dilatation ventricular [Unknown]
  - Coronary artery stenosis [Unknown]
  - Palpitations [Unknown]
  - Myalgia [Unknown]
  - Left ventricular hypertrophy [Unknown]
  - Cardiac dysfunction [Unknown]
  - Hypothyroidism [Unknown]
  - Cardiomyopathy [Unknown]
  - Ejection fraction abnormal [Unknown]
  - Dizziness [Unknown]
  - Left ventricular dilatation [Unknown]
  - Neck pain [Unknown]
  - Left ventricular dysfunction [Not Recovered/Not Resolved]
  - Congestive cardiomyopathy [Unknown]
  - Dyspnoea [Unknown]
  - Right ventricular dilatation [Unknown]
  - Hyperhidrosis [Unknown]
  - Cardiac disorder [Unknown]
  - Macrocytosis [Unknown]
  - Left atrial enlargement [Unknown]
  - Nausea [Unknown]

NARRATIVE: CASE EVENT DATE: 20170215
